FAERS Safety Report 23671714 (Version 1)
Quarter: 2024Q1

REPORT INFORMATION
  Report Type: Spontaneous
  Country: GB (occurrence: GB)
  Receive Date: 20240326
  Receipt Date: 20240326
  Transmission Date: 20240410
  Serious: Yes (Other)
  Sender: FDA-Public Use
  Company Number: GB-UCBSA-2024013216

PATIENT
  Sex: Female

DRUGS (1)
  1. CIMZIA [Suspect]
     Active Substance: CERTOLIZUMAB PEGOL
     Indication: Ankylosing spondylitis
     Dosage: UNK

REACTIONS (8)
  - Inflammatory bowel disease [Unknown]
  - Chest pain [Unknown]
  - Pain in jaw [Unknown]
  - Migraine [Unknown]
  - Anxiety [Unknown]
  - Depression [Unknown]
  - Myalgia [Unknown]
  - Sleep disorder [Unknown]
